FAERS Safety Report 17170568 (Version 1)
Quarter: 2019Q4

REPORT INFORMATION
  Report Type: Report from Study
  Country: ES (occurrence: ES)
  Receive Date: 20191218
  Receipt Date: 20191218
  Transmission Date: 20200122
  Serious: Yes (Life-Threatening, Hospitalization)
  Sender: FDA-Public Use
  Company Number: ES-MYLANLABS-2019M1123367

PATIENT
  Age: 47 Year
  Sex: Female

DRUGS (6)
  1. OLANZAPINE. [Suspect]
     Active Substance: OLANZAPINE
     Indication: PRODUCT USED FOR UNKNOWN INDICATION
     Dosage: 105 MILLIGRAM, TOTAL
     Route: 048
     Dates: start: 20180629, end: 20180629
  2. DIAZEPAM. [Interacting]
     Active Substance: DIAZEPAM
     Indication: PRODUCT USED FOR UNKNOWN INDICATION
     Dosage: 300 MILLIGRAM, TOTAL
     Route: 048
     Dates: start: 20180629, end: 20180629
  3. DESVENLAFAXINA [Interacting]
     Active Substance: DESVENLAFAXINE
     Indication: PRODUCT USED FOR UNKNOWN INDICATION
     Dosage: 700 MILLIGRAM, TOTAL
     Route: 048
     Dates: start: 20180629, end: 20180629
  4. DESVENLAFAXINA [Concomitant]
     Active Substance: DESVENLAFAXINE
     Indication: OBSESSIVE-COMPULSIVE DISORDER
     Dosage: 50 MILLIGRAM, QD
     Route: 048
     Dates: start: 20180314, end: 20180628
  5. DIAZEPAM. [Concomitant]
     Active Substance: DIAZEPAM
     Indication: OBSESSIVE-COMPULSIVE DISORDER
     Dosage: 15 MILLIGRAM, QD
     Route: 048
     Dates: start: 20121004, end: 20180628
  6. OLANZAPINA [Concomitant]
     Active Substance: OLANZAPINE
     Indication: OBSESSIVE-COMPULSIVE DISORDER
     Dosage: 2.5 MILLIGRAM, QD
     Route: 048
     Dates: start: 20170718, end: 20180628

REACTIONS (3)
  - Depressed level of consciousness [Recovered/Resolved]
  - Drug interaction [Unknown]
  - Suicide attempt [Recovered/Resolved]

NARRATIVE: CASE EVENT DATE: 20180629
